FAERS Safety Report 16861241 (Version 1)
Quarter: 2019Q3

REPORT INFORMATION
  Report Type: Spontaneous
  Country: TW (occurrence: TW)
  Receive Date: 20190927
  Receipt Date: 20190927
  Transmission Date: 20191005
  Serious: Yes (Hospitalization)
  Sender: FDA-Public Use
  Company Number: TW-SA-2019SA262536

PATIENT
  Age: 89 Year
  Sex: Female
  Weight: 66 kg

DRUGS (9)
  1. TOUJEO [Suspect]
     Active Substance: INSULIN GLARGINE
     Dosage: 30 U, HS
     Route: 058
     Dates: start: 20190915, end: 20190916
  2. TOUJEO [Suspect]
     Active Substance: INSULIN GLARGINE
     Dosage: 10 U, HS
     Route: 058
     Dates: start: 20190919
  3. TOUJEO [Suspect]
     Active Substance: INSULIN GLARGINE
     Dosage: 26 U, HS
     Route: 058
     Dates: start: 20190917, end: 20190918
  4. JARDIANCE [Concomitant]
     Active Substance: EMPAGLIFLOZIN
     Dosage: 25 MG, QD
     Route: 065
     Dates: start: 20190911
  5. TOUJEO [Suspect]
     Active Substance: INSULIN GLARGINE
     Dosage: 39 U, HS
     Route: 058
     Dates: start: 20190908, end: 20190912
  6. GLUFAST [Concomitant]
     Active Substance: MITIGLINIDE
     Dosage: 10 MG, TID
     Dates: start: 20190918
  7. TOUJEO [Suspect]
     Active Substance: INSULIN GLARGINE
     Dosage: 39 U, UNK
     Route: 058
  8. TOUJEO [Suspect]
     Active Substance: INSULIN GLARGINE
     Dosage: 36 U, HS
     Route: 058
     Dates: start: 20190913, end: 20190913
  9. TOUJEO [Suspect]
     Active Substance: INSULIN GLARGINE
     Dosage: 34 U, HS
     Route: 058
     Dates: start: 20190914, end: 20190914

REACTIONS (2)
  - Pneumonia [Unknown]
  - Hypoglycaemia [Not Recovered/Not Resolved]

NARRATIVE: CASE EVENT DATE: 20190913
